FAERS Safety Report 11753065 (Version 1)
Quarter: 2015Q4

REPORT INFORMATION
  Report Type: Report from Study
  Country: US (occurrence: US)
  Receive Date: 20151119
  Receipt Date: 20151119
  Transmission Date: 20160304
  Serious: Yes (Hospitalization)
  Sender: FDA-Public Use
  Company Number: US-ROCHE-1662579

PATIENT
  Age: 61 Year

DRUGS (3)
  1. CISPLATIN. [Suspect]
     Active Substance: CISPLATIN
     Indication: HEAD AND NECK CANCER METASTATIC
     Dosage: OVER 1-2 HRS, DAY 1
     Route: 042
     Dates: start: 20090618
  2. BEVACIZUMAB [Suspect]
     Active Substance: BEVACIZUMAB
     Indication: HEAD AND NECK CANCER METASTATIC
     Dosage: OVER 30-90 MIN, DAY 1
     Route: 042
     Dates: start: 20090618
  3. DOCETAXEL. [Suspect]
     Active Substance: DOCETAXEL
     Indication: HEAD AND NECK CANCER METASTATIC
     Dosage: OVER 1 HR, DAY 1
     Route: 042
     Dates: start: 20090618

REACTIONS (3)
  - Neutrophil count decreased [Unknown]
  - Rash maculo-papular [Unknown]
  - Diarrhoea [Unknown]

NARRATIVE: CASE EVENT DATE: 20090626
